FAERS Safety Report 9870121 (Version 5)
Quarter: 2014Q1

REPORT INFORMATION
  Report Type: Report from Study
  Country: FR (occurrence: FR)
  Receive Date: 20140205
  Receipt Date: 20140328
  Transmission Date: 20141002
  Serious: Yes (Hospitalization)
  Sender: FDA-Public Use
  Company Number: FR-ROCHE-1027562

PATIENT
  Age: 88 Year
  Sex: Male
  Weight: 70 kg

DRUGS (4)
  1. VISMODEGIB [Suspect]
     Indication: BASAL CELL CARCINOMA
     Dosage: LAST DOSE PRIOR TO DISORIENTATION AND BRONCHIAL INFECTION: 26/SEP/2011.?LAST DOSE PRIOR TO DEHYDRATI
     Route: 048
     Dates: start: 20111121, end: 20120116
  2. ZANIDIP [Concomitant]
     Indication: HYPERTENSION
     Route: 065
     Dates: start: 200001
  3. BURINEX [Concomitant]
     Indication: RENAL FAILURE
     Route: 065
     Dates: start: 200001
  4. TRAMADOL [Concomitant]
     Indication: OSTEOARTHRITIS
     Route: 065
     Dates: start: 200001

REACTIONS (3)
  - Dehydration [Recovered/Resolved]
  - Disorientation [Recovered/Resolved]
  - Bronchitis [Recovered/Resolved]
